FAERS Safety Report 21985683 (Version 1)
Quarter: 2023Q1

REPORT INFORMATION
  Report Type: Spontaneous
  Country: US (occurrence: US)
  Receive Date: 20230213
  Receipt Date: 20230213
  Transmission Date: 20230417
  Serious: No
  Sender: FDA-Public Use
  Company Number: US-BEH-2023155159

PATIENT
  Age: 11 Year
  Sex: Female

DRUGS (2)
  1. HIZENTRA [Suspect]
     Active Substance: HUMAN IMMUNOGLOBULIN G
     Indication: Immunodeficiency common variable
     Dosage: 1 GRAM, QW
     Route: 058
     Dates: start: 201803
  2. HIZENTRA [Suspect]
     Active Substance: HUMAN IMMUNOGLOBULIN G
     Dosage: 4 GRAM, QW
     Route: 058
     Dates: start: 201803

REACTIONS (6)
  - Nasopharyngitis [Unknown]
  - Asthma [Unknown]
  - Infusion site mass [Unknown]
  - Infusion site induration [Unknown]
  - Infusion site mass [Recovered/Resolved]
  - Infusion site induration [Recovered/Resolved]

NARRATIVE: CASE EVENT DATE: 20230101
